FAERS Safety Report 6557762-7 (Version None)
Quarter: 2010Q1

REPORT INFORMATION
  Report Type: 
  Country: None (occurrence: None)
  Receive Date: 20100129
  Receipt Date: 20100122
  Transmission Date: 20100710
  Serious: No
  Sender: FDA-Public Use
  Company Number: US-B.I. PHARMACEUTICALS,INC./RIDGEFIELD-2009-BP-14031BP

PATIENT
  Age: 67 Year
  Sex: Male
  Weight: 90.72 kg

DRUGS (17)
  1. FLOMAX [Suspect]
     Indication: BENIGN PROSTATIC HYPERPLASIA
     Dosage: 0.8 MG
     Route: 048
     Dates: start: 20060101
  2. FLOMAX [Suspect]
     Indication: DYSURIA
  3. DOXEPIN HCL [Concomitant]
     Dosage: 100 MG
  4. LISINOPRIL [Concomitant]
     Dosage: 5 MG
  5. TARGRETIN [Concomitant]
     Dosage: 75 MG
  6. TRICOR [Concomitant]
     Dosage: 145 MG
  7. INTERFERON [Concomitant]
  8. SYNTHROID [Concomitant]
     Dosage: 25 MCG
  9. LOVAZA [Concomitant]
     Dosage: 1000 MG
  10. SERTRALINE HCL [Concomitant]
     Dosage: 50 MG
  11. HYDROCODONE [Concomitant]
  12. LOVAZA [Concomitant]
     Dosage: 1000 MG
  13. LORATADINE [Concomitant]
     Dosage: 10 MG
  14. ASPIRIN [Concomitant]
     Dosage: 81 MG
  15. MULTI-VITAMIN [Concomitant]
  16. VICODIN [Concomitant]
  17. PRAVASTATIN [Concomitant]
     Dosage: 40 MG

REACTIONS (1)
  - URINARY TRACT DISORDER [None]
